FAERS Safety Report 24438558 (Version 2)
Quarter: 2024Q4

REPORT INFORMATION
  Report Type: Spontaneous
  Country: US (occurrence: US)
  Receive Date: 20241015
  Receipt Date: 20241115
  Transmission Date: 20250115
  Serious: No
  Sender: BLUEPRINT MEDICINES
  Company Number: US-Blueprint Medicines Corporation-5021

PATIENT
  Age: 72 Year
  Sex: Female

DRUGS (1)
  1. AYVAKIT [Suspect]
     Active Substance: AVAPRITINIB
     Indication: Systemic mastocytosis
     Route: 048
     Dates: start: 20220115

REACTIONS (5)
  - Pain in extremity [Unknown]
  - Back pain [Unknown]
  - Skin burning sensation [Unknown]
  - Herpes zoster [Unknown]
  - Sciatica [Unknown]
